FAERS Safety Report 7480506-1 (Version None)
Quarter: 2011Q2

REPORT INFORMATION
  Report Type: 
  Country: None (occurrence: None)
  Receive Date: 20110504
  Receipt Date: 20110426
  Transmission Date: 20111010
  Serious: Yes (Other)
  Sender: FDA-Public Use
  Company Number: 2011SP009910

PATIENT
  Age: 59 Year
  Sex: Male

DRUGS (5)
  1. PROPAVAN [Concomitant]
  2. OXASCAND [Concomitant]
  3. MIRTAZAPINE [Suspect]
     Indication: INSOMNIA
     Dosage: 30 MG; QPM;
     Dates: start: 20081101, end: 20090101
  4. PREDNISOLONE [Concomitant]
  5. DIAZEPAM [Concomitant]

REACTIONS (13)
  - WEIGHT DECREASED [None]
  - HEARING IMPAIRED [None]
  - FALL [None]
  - DIARRHOEA [None]
  - HAEMATOMA [None]
  - DRUG INEFFECTIVE [None]
  - BALANCE DISORDER [None]
  - TRAUMATIC LUNG INJURY [None]
  - ANXIETY [None]
  - TREMOR [None]
  - PRURITUS [None]
  - SKELETAL INJURY [None]
  - HYPERHIDROSIS [None]
